FAERS Safety Report 17216511 (Version 1)
Quarter: 2019Q4

REPORT INFORMATION
  Report Type: Spontaneous
  Country: FR (occurrence: FR)
  Receive Date: 20191230
  Receipt Date: 20191230
  Transmission Date: 20200122
  Serious: Yes (Hospitalization)
  Sender: FDA-Public Use
  Company Number: FR-AUROBINDO-AUR-APL-2019-107973

PATIENT
  Age: 60 Year
  Sex: Male
  Weight: 93.5 kg

DRUGS (8)
  1. MORPHINE [Suspect]
     Active Substance: MORPHINE
     Indication: NEURALGIA
     Dosage: 9.12 MILLIGRAM, ONCE A DAY(9,12MG/JR)
     Route: 037
     Dates: start: 201902
  2. PRIALT [Suspect]
     Active Substance: ZICONOTIDE ACETATE
     Indication: NEURALGIA
     Dosage: 2.64 MICROGRAM, ONCE A DAY(2.64?G/JR)
     Route: 037
     Dates: start: 201902
  3. GABAPENTIN. [Suspect]
     Active Substance: GABAPENTIN
     Indication: NEURALGIA
     Dosage: 3000 MILLIGRAM, ONCE A DAY
     Route: 048
     Dates: end: 20191121
  4. ROPIVACAINE HYDROCHLORIDE MONOHYDRATE [Suspect]
     Active Substance: ROPIVACAINE HYDROCHLORIDE
     Indication: NEURALGIA
     Dosage: 19.2 MILLIGRAM, ONCE A DAY(19,2MG/JR)
     Route: 037
     Dates: start: 201902
  5. CYMBALTA [Suspect]
     Active Substance: DULOXETINE HYDROCHLORIDE
     Indication: NEURALGIA
     Dosage: 90 MILLIGRAM, ONCE A DAY
     Route: 048
     Dates: end: 20191121
  6. BACLOFENE [Suspect]
     Active Substance: BACLOFEN
     Indication: NEURALGIA
     Dosage: 70 MILLIGRAM, ONCE A DAY
     Route: 048
     Dates: end: 20191121
  7. PERINDOPRIL [Concomitant]
     Active Substance: PERINDOPRIL
     Indication: PRODUCT USED FOR UNKNOWN INDICATION
     Dosage: 2 MILLIGRAM, ONCE A DAY
     Route: 048
     Dates: end: 201911
  8. NEBIVOLOL. [Concomitant]
     Active Substance: NEBIVOLOL
     Indication: PRODUCT USED FOR UNKNOWN INDICATION
     Dosage: 3.75 MILLIGRAM, ONCE A DAY
     Route: 048
     Dates: end: 201911

REACTIONS (2)
  - Confusional state [Recovered/Resolved]
  - Disturbance in attention [Recovered/Resolved]

NARRATIVE: CASE EVENT DATE: 20191120
